FAERS Safety Report 24568851 (Version 1)
Quarter: 2024Q4

REPORT INFORMATION
  Report Type: Other
  Country: GB (occurrence: GB)
  Receive Date: 20241031
  Receipt Date: 20241031
  Transmission Date: 20250115
  Serious: Yes (Other)
  Sender: GLENMARK
  Company Number: None

PATIENT

DRUGS (1)
  1. MONTELUKAST SODIUM [Suspect]
     Active Substance: MONTELUKAST SODIUM
     Indication: Bronchial hyperreactivity
     Dosage: 4 MILLIGRAM, AT NIGHT (FORMULATION: TABLET)
     Route: 065
     Dates: start: 20241014

REACTIONS (5)
  - Mood altered [Not Recovered/Not Resolved]
  - Decreased appetite [Unknown]
  - Dependent personality disorder [Unknown]
  - Loss of personal independence in daily activities [Unknown]
  - Irritability [Unknown]

NARRATIVE: CASE EVENT DATE: 20241018
